FAERS Safety Report 15518538 (Version 7)
Quarter: 2020Q2

REPORT INFORMATION
  Report Type: Report from Study
  Country: US (occurrence: US)
  Receive Date: 20181017
  Receipt Date: 20200423
  Transmission Date: 20200713
  Serious: Yes (Death, Hospitalization)
  Sender: FDA-Public Use
  Company Number: US-ACTELION-A-NJ2018-179671

PATIENT
  Age: 87 Year
  Sex: Male
  Weight: 72.56 kg

DRUGS (1)
  1. OPSUMIT [Suspect]
     Active Substance: MACITENTAN
     Indication: PULMONARY ARTERIAL HYPERTENSION
     Dosage: 10 MG, QD
     Route: 048
     Dates: start: 20180914

REACTIONS (11)
  - Cardiac disorder [Unknown]
  - Chronic obstructive pulmonary disease [Unknown]
  - Lung disorder [Unknown]
  - Dialysis [Unknown]
  - Death [Fatal]
  - Sepsis [Unknown]
  - Renal failure [Unknown]
  - Pneumonia [Not Recovered/Not Resolved]
  - Hyperglycaemia [Unknown]
  - Blister [Not Recovered/Not Resolved]
  - Diabetes mellitus [Unknown]

NARRATIVE: CASE EVENT DATE: 201809
